FAERS Safety Report 4928137-9 (Version None)
Quarter: 2006Q1

REPORT INFORMATION
  Report Type: 
  Country: None (occurrence: None)
  Receive Date: 20060223
  Receipt Date: 20060210
  Transmission Date: 20060701
  Serious: Yes (Hospitalization)
  Sender: FDA-Public Use
  Company Number: HQWYE313312JAN06

PATIENT
  Age: 36 Year
  Sex: Male

DRUGS (5)
  1. INDERAL LA [Suspect]
     Indication: TACHYCARDIA
     Dosage: 60 MG 1X PER 1 DAY ORAL
     Route: 048
     Dates: start: 20051209, end: 20060104
  2. MERCAZOLE (THIAMAZOLE) [Suspect]
     Indication: BASEDOW'S DISEASE
     Dosage: 30 MG 1X 1 PER 1 DAY  ORAL
     Route: 048
     Dates: start: 20051213, end: 20051227
  3. MERCAZOLE (THIAMAZOLE) [Suspect]
     Indication: HYPERTHYROIDISM
     Dosage: 30 MG 1X 1 PER 1 DAY  ORAL
     Route: 048
     Dates: start: 20051213, end: 20051227
  4. MERCAZOLE (THIAMAZOLE) [Suspect]
     Indication: TACHYCARDIA
     Dosage: 30 MG 1X 1 PER 1 DAY  ORAL
     Route: 048
     Dates: start: 20051213, end: 20051227
  5. CELTECT (OXATOMIDE) [Concomitant]

REACTIONS (7)
  - ALANINE AMINOTRANSFERASE INCREASED [None]
  - ASPARTATE AMINOTRANSFERASE INCREASED [None]
  - BASEDOW'S DISEASE [None]
  - BLOOD ALKALINE PHOSPHATASE INCREASED [None]
  - CONDITION AGGRAVATED [None]
  - HEPATIC FUNCTION ABNORMAL [None]
  - LIVER DISORDER [None]
